FAERS Safety Report 17218958 (Version 1)
Quarter: 2019Q4

REPORT INFORMATION
  Report Type: Report from Study
  Country: CA (occurrence: CA)
  Receive Date: 20191231
  Receipt Date: 20191231
  Transmission Date: 20200122
  Serious: No
  Sender: FDA-Public Use
  Company Number: CA-JNJFOC-20191242976

PATIENT
  Sex: Female
  Weight: 55.5 kg

DRUGS (1)
  1. SIMPONI [Suspect]
     Active Substance: GOLIMUMAB
     Indication: PSORIATIC ARTHROPATHY
     Route: 058
     Dates: start: 20110421

REACTIONS (4)
  - Neoplasm [Unknown]
  - Nail discolouration [Unknown]
  - Nail disorder [Unknown]
  - Skin exfoliation [Unknown]
